FAERS Safety Report 16263555 (Version 1)
Quarter: 2019Q2

REPORT INFORMATION
  Report Type: Spontaneous
  Country: NL (occurrence: NL)
  Receive Date: 20190502
  Receipt Date: 20190502
  Transmission Date: 20190711
  Serious: Yes (Other)
  Sender: FDA-Public Use
  Company Number: NL-AUROBINDO-AUR-APL-2019-022517

PATIENT

DRUGS (6)
  1. CANNABIDIOL;DRONABINOL (TETRAHYDROCANNABINOL AND CANNABIDIOL) [Interacting]
     Active Substance: CANNABIDIOL\.DELTA.8-TETRAHYDROCANNABINOL
     Indication: PAIN
     Dosage: UNK, FOUR TIMES/DAY (3 MG CBD AND 1.95 MG THC, 4 X DAILY )
     Route: 060
  2. OXYCODONE [Suspect]
     Active Substance: OXYCODONE
     Indication: PAIN
     Dosage: 5 MILLIGRAM, 3 TIMES A DAY (OXYCODONE- IR)
     Route: 065
  3. MORPHINE [Suspect]
     Active Substance: MORPHINE
     Indication: PAIN
     Dosage: 5 MILLIGRAM, ONCE A DAY
     Route: 061
  4. IBUPROFEN. [Suspect]
     Active Substance: IBUPROFEN
     Indication: PAIN
     Dosage: 200 MILLIGRAM, FOUR TIMES/DAY
     Route: 065
  5. PARACETAMOL [Suspect]
     Active Substance: ACETAMINOPHEN
     Indication: PAIN
     Dosage: 1000 MILLIGRAM, DAILY
     Route: 065
  6. OXYCODONE [Interacting]
     Active Substance: OXYCODONE
     Dosage: 20 MILLIGRAM, ONCE A DAY
     Route: 048

REACTIONS (4)
  - Inadequate analgesia [Not Recovered/Not Resolved]
  - Drug interaction [Recovering/Resolving]
  - Neurological symptom [Recovering/Resolving]
  - Time perception altered [Recovering/Resolving]
